FAERS Safety Report 18224375 (Version 2)
Quarter: 2024Q3

REPORT INFORMATION
  Report Type: Spontaneous
  Country: US (occurrence: US)
  Receive Date: 20200902
  Receipt Date: 20240710
  Transmission Date: 20241017
  Serious: Yes (Death, Other)
  Sender: PURDUE
  Company Number: US-PURDUE-USA-2020-0164290

PATIENT
  Age: 26 Year
  Sex: Male

DRUGS (14)
  1. OXYCONTIN [Suspect]
     Active Substance: OXYCODONE HYDROCHLORIDE
     Indication: Pain
     Dosage: UNK
     Route: 048
  2. OXYCONTIN [Suspect]
     Active Substance: OXYCODONE HYDROCHLORIDE
     Dosage: UNK
     Route: 042
  3. XANAX [Suspect]
     Active Substance: ALPRAZOLAM
     Indication: Product used for unknown indication
     Dosage: UNK
     Route: 048
  4. COCAINE [Suspect]
     Active Substance: COCAINE
     Indication: Substance abuse
     Dosage: UNK
     Route: 042
  5. ALPRAZOLAM [Suspect]
     Active Substance: ALPRAZOLAM
     Indication: Product used for unknown indication
     Dosage: UNK
     Route: 048
  6. ALPRAZOLAM [Suspect]
     Active Substance: ALPRAZOLAM
     Dosage: UNK
     Route: 042
  7. DIAZEPAM [Suspect]
     Active Substance: DIAZEPAM
     Indication: Product used for unknown indication
     Dosage: UNK
     Route: 048
  8. DIAZEPAM [Suspect]
     Active Substance: DIAZEPAM
     Dosage: UNK
     Route: 042
  9. DOXYLAMINE [Suspect]
     Active Substance: DOXYLAMINE
     Indication: Product used for unknown indication
     Dosage: UNK
     Route: 048
  10. DOXYLAMINE [Suspect]
     Active Substance: DOXYLAMINE
     Dosage: UNK
     Route: 042
  11. LEVORPHANOL [Suspect]
     Active Substance: LEVORPHANOL
     Indication: Product used for unknown indication
     Dosage: UNK
     Route: 048
  12. LEVORPHANOL [Suspect]
     Active Substance: LEVORPHANOL
     Dosage: UNK
     Route: 042
  13. LIDOCAINE [Suspect]
     Active Substance: LIDOCAINE
     Indication: Product used for unknown indication
     Dosage: UNK
     Route: 048
  14. LIDOCAINE [Suspect]
     Active Substance: LIDOCAINE
     Dosage: UNK
     Route: 042

REACTIONS (6)
  - Toxicity to various agents [Fatal]
  - Cardiomegaly [Unknown]
  - Limb operation [Unknown]
  - Overdose [Unknown]
  - Drug dependence [Unknown]
  - Substance abuse [Unknown]

NARRATIVE: CASE EVENT DATE: 20160311
